FAERS Safety Report 7444501-0 (Version None)
Quarter: 2011Q2

REPORT INFORMATION
  Report Type: 
  Country: None (occurrence: None)
  Receive Date: 20110427
  Receipt Date: 20110427
  Transmission Date: 20111010
  Serious: Yes (Hospitalization)
  Sender: FDA-Public Use
  Company Number: None

PATIENT
  Age: 63 Year
  Sex: Female
  Weight: 70.3075 kg

DRUGS (1)
  1. HERCEPTIN [Suspect]
     Dosage: 136 MG WEEKLY X 5 WEEKS

REACTIONS (11)
  - HYPOXIA [None]
  - AORTIC VALVE INCOMPETENCE [None]
  - SYNCOPE [None]
  - PULMONARY OEDEMA [None]
  - PULMONARY ARTERIAL PRESSURE INCREASED [None]
  - PULMONARY TOXICITY [None]
  - ANAEMIA [None]
  - DYSPNOEA [None]
  - COUGH [None]
  - PLEURAL EFFUSION [None]
  - PULMONARY ARTERY DILATATION [None]
